FAERS Safety Report 16082870 (Version 4)
Quarter: 2019Q2

REPORT INFORMATION
  Report Type: Report from Study
  Country: ES (occurrence: ES)
  Receive Date: 20190318
  Receipt Date: 20190522
  Transmission Date: 20190711
  Serious: Yes (Hospitalization)
  Sender: FDA-Public Use
  Company Number: ES-ROCHE-2270343

PATIENT
  Age: 20 Year
  Sex: Male

DRUGS (8)
  1. METHYLPREDNISOLONE. [Concomitant]
     Active Substance: METHYLPREDNISOLONE
     Indication: PREMEDICATION
     Route: 042
     Dates: start: 20181029, end: 20181029
  2. CETIRIZINE [Concomitant]
     Active Substance: CETIRIZINE HYDROCHLORIDE
     Indication: PREMEDICATION
     Route: 048
     Dates: start: 20181029, end: 20181029
  3. PARACETAMOL [Concomitant]
     Active Substance: ACETAMINOPHEN
     Indication: PREMEDICATION
     Route: 048
     Dates: start: 20181029, end: 20181029
  4. IBUPROFENO [Concomitant]
     Active Substance: IBUPROFEN
     Indication: SURGERY
     Route: 048
     Dates: start: 20181218
  5. OCRELIZUMAB. [Suspect]
     Active Substance: OCRELIZUMAB
     Indication: MULTIPLE SCLEROSIS
     Dosage: MOST RECENT DOSE OF OCRELIZUMAB WAS ON 29/OCT/2018 AT 11:05
     Route: 042
     Dates: start: 20181029
  6. LORATADINE. [Concomitant]
     Active Substance: LORATADINE
     Route: 048
  7. OMEPRAZOL [OMEPRAZOLE] [Concomitant]
     Indication: PROPHYLAXIS
     Route: 048
     Dates: start: 20181218, end: 20190118
  8. PARACETAMOL [Concomitant]
     Active Substance: ACETAMINOPHEN
     Indication: SURGERY
     Route: 048
     Dates: start: 20181218

REACTIONS (1)
  - Urinary tract infection [Recovered/Resolved]

NARRATIVE: CASE EVENT DATE: 20190218
